FAERS Safety Report 6393684-2 (Version None)
Quarter: 2009Q4

REPORT INFORMATION
  Report Type: 
  Country: None (occurrence: None)
  Receive Date: 20091008
  Receipt Date: 20091005
  Transmission Date: 20100525
  Serious: Yes (Death, Hospitalization, Other)
  Sender: FDA-Public Use
  Company Number: US-JNJFOC-20090906134

PATIENT
  Sex: Male

DRUGS (23)
  1. HALDOL [Suspect]
     Indication: AGITATION
     Route: 065
     Dates: start: 19960508
  2. PEPCID [Suspect]
     Route: 065
     Dates: start: 19960508
  3. PEPCID [Suspect]
     Indication: DRUG USE FOR UNKNOWN INDICATION
     Route: 065
     Dates: start: 19960508
  4. VERSED [Suspect]
     Indication: AGITATION
     Route: 065
     Dates: start: 19960508
  5. INVIRASE [Suspect]
     Indication: HIV INFECTION
     Route: 065
     Dates: start: 19960501
  6. CLINDAMYCIN [Suspect]
     Indication: TOXOPLASMOSIS
     Route: 065
     Dates: start: 19960508
  7. AMPICILLIN [Suspect]
     Indication: OPPORTUNISTIC INFECTION PROPHYLAXIS
     Route: 065
  8. TRIMETHOPRIM [Suspect]
     Indication: ANTIFUNGAL PROPHYLAXIS
     Route: 065
  9. AZT [Suspect]
     Indication: ANTIVIRAL TREATMENT
     Route: 065
  10. 3TC [Suspect]
     Indication: ANTIVIRAL TREATMENT
     Route: 065
  11. SULFADIAZINE [Suspect]
     Indication: DRUG USE FOR UNKNOWN INDICATION
     Route: 065
  12. DILANTIN [Suspect]
     Indication: DRUG USE FOR UNKNOWN INDICATION
     Route: 065
  13. HYDROXYZINE [Suspect]
     Indication: DRUG USE FOR UNKNOWN INDICATION
     Route: 065
  14. METHADONE HYDROCHLORIDE [Suspect]
     Indication: DRUG USE FOR UNKNOWN INDICATION
     Route: 065
  15. ETHAMBUTOL HYDROCHLORIDE [Suspect]
     Indication: OPPORTUNISTIC INFECTION PROPHYLAXIS
     Route: 065
  16. PYRIMETHAMINE TAB [Suspect]
     Indication: DRUG USE FOR UNKNOWN INDICATION
     Route: 065
  17. ATIVAN [Suspect]
     Indication: AGITATION
     Route: 065
     Dates: start: 19960508
  18. ACYCLOVIR [Suspect]
     Indication: ANTIVIRAL PROPHYLAXIS
     Route: 065
     Dates: start: 19960508
  19. MANNITOL [Suspect]
     Indication: DRUG USE FOR UNKNOWN INDICATION
     Route: 065
     Dates: start: 19960508
  20. MORPHINE [Suspect]
     Indication: DRUG USE FOR UNKNOWN INDICATION
     Route: 065
     Dates: start: 19960509
  21. COCAINE [Suspect]
     Indication: DRUG USE FOR UNKNOWN INDICATION
     Route: 065
  22. CEFTRIAXONE SODIUM [Suspect]
     Indication: OPPORTUNISTIC INFECTION PROPHYLAXIS
     Route: 065
     Dates: start: 19960508
  23. FOLIC ACID [Suspect]
     Indication: DRUG USE FOR UNKNOWN INDICATION
     Route: 065

REACTIONS (14)
  - AGITATION [None]
  - ATAXIA [None]
  - BLOOD CREATINE PHOSPHOKINASE INCREASED [None]
  - BLOOD MAGNESIUM DECREASED [None]
  - BLOOD POTASSIUM DECREASED [None]
  - COMPLEX PARTIAL SEIZURES [None]
  - DYSKINESIA [None]
  - HEADACHE [None]
  - HYPOTENSION [None]
  - MENTAL IMPAIRMENT [None]
  - MUSCULAR WEAKNESS [None]
  - TORSADE DE POINTES [None]
  - VENTRICULAR ARRHYTHMIA [None]
  - VENTRICULAR EXTRASYSTOLES [None]
